FAERS Safety Report 14391374 (Version 2)
Quarter: 2018Q1

REPORT INFORMATION
  Report Type: Spontaneous
  Country: SE (occurrence: SE)
  Receive Date: 20180116
  Receipt Date: 20180122
  Transmission Date: 20180509
  Serious: Yes (Other)
  Sender: FDA-Public Use
  Company Number: SE-JNJFOC-20180113952

PATIENT
  Age: 78 Year
  Sex: Female

DRUGS (2)
  1. IPREN UNSPECIFIED [Suspect]
     Active Substance: IBUPROFEN
     Indication: PRODUCT USED FOR UNKNOWN INDICATION
     Route: 065
  2. IPREN UNSPECIFIED [Suspect]
     Active Substance: IBUPROFEN
     Route: 065

REACTIONS (1)
  - Tubulointerstitial nephritis [Unknown]
